FAERS Safety Report 26195041 (Version 1)
Quarter: 2025Q4

REPORT INFORMATION
  Report Type: Spontaneous
  Country: US (occurrence: US)
  Receive Date: 20251224
  Receipt Date: 20251224
  Transmission Date: 20260118
  Serious: No
  Sender: CELLTRION
  Company Number: US-CELLTRION INC.-2025US034507

PATIENT

DRUGS (1)
  1. TRUXIMA [Suspect]
     Active Substance: RITUXIMAB-ABBS
     Indication: Immunodeficiency common variable
     Dosage: 880 MILLIGRAM EVERY 6 MONTHS

REACTIONS (3)
  - Product storage error [Recovered/Resolved]
  - Therapy interrupted [Recovered/Resolved]
  - Intentional product use issue [Unknown]
